FAERS Safety Report 10556299 (Version 2)
Quarter: 2015Q1

REPORT INFORMATION
  Report Type: Report from Study
  Country: US (occurrence: US)
  Receive Date: 20141031
  Receipt Date: 20150321
  Transmission Date: 20150720
  Serious: Yes (Other)
  Sender: FDA-Public Use
  Company Number: US-BIOGENIDEC-2014BI112106

PATIENT
  Age: 34 Year
  Sex: Female

DRUGS (1)
  1. TYSABRI [Suspect]
     Active Substance: NATALIZUMAB
     Indication: MULTIPLE SCLEROSIS
     Route: 042
     Dates: start: 20140828

REACTIONS (10)
  - Seizure [Recovered/Resolved]
  - Photophobia [Not Recovered/Not Resolved]
  - Fatigue [Not Recovered/Not Resolved]
  - Tongue disorder [Recovered/Resolved]
  - Eye pain [Not Recovered/Not Resolved]
  - Optic neuritis [Not Recovered/Not Resolved]
  - Fall [Recovered/Resolved]
  - Glossodynia [Not Recovered/Not Resolved]
  - Ureteric dilatation [Recovered/Resolved]
  - Urinary retention [Recovered/Resolved]

NARRATIVE: CASE EVENT DATE: 2014
